FAERS Safety Report 7164199-9 (Version None)
Quarter: 2010Q4

REPORT INFORMATION
  Report Type: 
  Country: None (occurrence: None)
  Receive Date: 20101215
  Receipt Date: 20101208
  Transmission Date: 20110411
  Serious: Yes (Other)
  Sender: FDA-Public Use
  Company Number: US-AMGEN-USASP2010008375

PATIENT

DRUGS (3)
  1. ENBREL [Suspect]
     Indication: ANKYLOSING SPONDYLITIS
     Route: 058
     Dates: start: 20101106
  2. METHOTREXATE [Concomitant]
     Dates: start: 20100901
  3. INSULIN [Concomitant]
     Indication: DIABETES MELLITUS

REACTIONS (6)
  - ARTHRALGIA [None]
  - BLOOD GLUCOSE DECREASED [None]
  - FEELING OF BODY TEMPERATURE CHANGE [None]
  - INJECTION SITE ERYTHEMA [None]
  - PAIN IN EXTREMITY [None]
  - PROTEIN URINE PRESENT [None]
